FAERS Safety Report 12574174 (Version 1)
Quarter: 2016Q3

REPORT INFORMATION
  Report Type: Spontaneous
  Country: IT (occurrence: IT)
  Receive Date: 20160720
  Receipt Date: 20160720
  Transmission Date: 20161109
  Serious: Yes (Death, Other)
  Sender: FDA-Public Use
  Company Number: IT-JNJFOC-20160712286

PATIENT

DRUGS (1)
  1. HUMAN THROMBIN [Suspect]
     Active Substance: THROMBIN HUMAN
     Indication: VASCULAR PSEUDOANEURYSM
     Route: 050

REACTIONS (3)
  - Drug ineffective for unapproved indication [Unknown]
  - Post procedural complication [Fatal]
  - Off label use [Unknown]
